FAERS Safety Report 8507568-4 (Version None)
Quarter: 2012Q3

REPORT INFORMATION
  Report Type: 
  Country: None (occurrence: None)
  Receive Date: 20120713
  Receipt Date: 20120703
  Transmission Date: 20120928
  Serious: Yes (Other)
  Sender: FDA-Public Use
  Company Number: US-BIOGENIDEC-2012BI007008

PATIENT
  Age: 46 Year
  Sex: Female

DRUGS (3)
  1. AVONEX [Suspect]
     Route: 030
     Dates: start: 19980515
  2. AVONEX [Suspect]
     Indication: MULTIPLE SCLEROSIS
     Route: 030
  3. AVONEX [Suspect]
     Route: 030
     Dates: start: 20000101

REACTIONS (8)
  - FUNCTIONAL GASTROINTESTINAL DISORDER [None]
  - BLADDER DYSFUNCTION [None]
  - INFLUENZA [None]
  - FATIGUE [None]
  - BLOOD PRESSURE INCREASED [None]
  - HEADACHE [None]
  - COGNITIVE DISORDER [None]
  - BLOOD PRESSURE FLUCTUATION [None]
